FAERS Safety Report 6528575-7 (Version None)
Quarter: 2010Q1

REPORT INFORMATION
  Report Type: 
  Country: None (occurrence: None)
  Receive Date: 20100106
  Receipt Date: 20091225
  Transmission Date: 20100710
  Serious: Yes (Other)
  Sender: FDA-Public Use
  Company Number: JP-PFIZER INC-2009309900

PATIENT
  Age: 31 Year
  Sex: Female

DRUGS (3)
  1. ZOLOFT [Suspect]
     Indication: PANIC DISORDER
     Dosage: 50MG DAILY
     Route: 048
     Dates: start: 20091027
  2. CERCINE [Suspect]
     Dosage: 6MG/DAY
  3. HERBAL PREPARATION [Suspect]

REACTIONS (1)
  - CHROMATURIA [None]
